FAERS Safety Report 17753268 (Version 1)
Quarter: 2020Q2

REPORT INFORMATION
  Report Type: Spontaneous
  Country: JP (occurrence: JP)
  Receive Date: 20200506
  Receipt Date: 20200506
  Transmission Date: 20200714
  Serious: Yes (Other)
  Sender: FDA-Public Use
  Company Number: NVSC2020JP122236

PATIENT
  Age: 60 Year
  Sex: Female

DRUGS (8)
  1. CYCLOPHOSPHAMIDE. [Suspect]
     Active Substance: CYCLOPHOSPHAMIDE
     Indication: DERMATOMYOSITIS
     Dosage: UNK
     Route: 042
  2. METHYLPREDNISOLONE. [Suspect]
     Active Substance: METHYLPREDNISOLONE
     Indication: INTERSTITIAL LUNG DISEASE
  3. TACROLIMUS. [Suspect]
     Active Substance: TACROLIMUS
     Indication: DERMATOMYOSITIS
     Dosage: 6 MG
     Route: 065
  4. TACROLIMUS. [Suspect]
     Active Substance: TACROLIMUS
     Indication: INTERSTITIAL LUNG DISEASE
  5. METHYLPREDNISOLONE. [Suspect]
     Active Substance: METHYLPREDNISOLONE
     Indication: DERMATOMYOSITIS
     Dosage: UNK
     Route: 065
  6. PREDNISOLONE. [Suspect]
     Active Substance: PREDNISOLONE
     Indication: INTERSTITIAL LUNG DISEASE
  7. PREDNISOLONE. [Suspect]
     Active Substance: PREDNISOLONE
     Indication: DERMATOMYOSITIS
     Dosage: 50 MG
     Route: 065
  8. CYCLOPHOSPHAMIDE. [Suspect]
     Active Substance: CYCLOPHOSPHAMIDE
     Indication: INTERSTITIAL LUNG DISEASE

REACTIONS (8)
  - Cytomegalovirus infection reactivation [Unknown]
  - Herpes zoster [Unknown]
  - Depression [Unknown]
  - Dyslipidaemia [Unknown]
  - Leukopenia [Unknown]
  - Product use in unapproved indication [Unknown]
  - Thrombocytopenia [Unknown]
  - Hyperglycaemia [Unknown]
